FAERS Safety Report 7442652-8 (Version None)
Quarter: 2011Q2

REPORT INFORMATION
  Report Type: 
  Country: None (occurrence: None)
  Receive Date: 20110428
  Receipt Date: 20110419
  Transmission Date: 20111010
  Serious: Yes (Other)
  Sender: FDA-Public Use
  Company Number: AT-ASTRAZENECA-2011SE22705

PATIENT
  Age: 1 Month
  Sex: Female

DRUGS (2)
  1. PROPOFOL [Suspect]
     Route: 042
  2. NAROPIN [Suspect]
     Route: 065

REACTIONS (4)
  - METABOLIC DISORDER [None]
  - OFF LABEL USE [None]
  - DEVELOPMENTAL DELAY [None]
  - CONVULSION [None]
